FAERS Safety Report 13367381 (Version 1)
Quarter: 2017Q1

REPORT INFORMATION
  Report Type: Other
  Country: US (occurrence: JP)
  Receive Date: 20170324
  Receipt Date: 20170324
  Transmission Date: 20170429
  Serious: Yes (Other)
  Sender: FDA-Public Use
  Company Number: JP-BRECKENRIDGE PHARMACEUTICAL, INC.-1064607

PATIENT
  Age: 67 Year
  Sex: Male

DRUGS (1)
  1. CILOSTAZOL. [Suspect]
     Active Substance: CILOSTAZOL

REACTIONS (1)
  - Acute kidney injury [Recovered/Resolved]
